FAERS Safety Report 14184850 (Version 2)
Quarter: 2017Q4

REPORT INFORMATION
  Report Type: Spontaneous
  Country: US (occurrence: US)
  Receive Date: 20171113
  Receipt Date: 20171130
  Transmission Date: 20180321
  Serious: Yes (Hospitalization)
  Sender: FDA-Public Use
  Company Number: US-TAKEDA-2017MPI009997

PATIENT
  Age: 66 Year
  Sex: Female

DRUGS (7)
  1. ASPIRIN 81 [Concomitant]
     Active Substance: ASPIRIN
     Route: 065
  2. NORTRIPTYLINE [Concomitant]
     Active Substance: NORTRIPTYLINE
     Route: 065
  3. XANAX [Concomitant]
     Active Substance: ALPRAZOLAM
     Route: 065
  4. NINLARO [Suspect]
     Active Substance: IXAZOMIB CITRATE
     Indication: PLASMA CELL MYELOMA
     Dosage: 4 MG, 1/WEEK
     Route: 048
     Dates: start: 20171019
  5. FENTANYL. [Concomitant]
     Active Substance: FENTANYL
     Route: 065
  6. PROTONIX                           /00661201/ [Concomitant]
     Active Substance: OMEPRAZOLE
     Route: 065
  7. POMALYST [Concomitant]
     Active Substance: POMALIDOMIDE
     Indication: PLASMA CELL MYELOMA
     Route: 065

REACTIONS (5)
  - Infection [Unknown]
  - Off label use [Unknown]
  - Platelet count decreased [Unknown]
  - Insomnia [Unknown]
  - Pneumonia [Unknown]

NARRATIVE: CASE EVENT DATE: 20171109
